FAERS Safety Report 26052462 (Version 1)
Quarter: 2025Q4

REPORT INFORMATION
  Report Type: Report from Study
  Country: EU (occurrence: EU)
  Receive Date: 20251117
  Receipt Date: 20251117
  Transmission Date: 20260118
  Serious: Yes (Other)
  Sender: PANACEA BIOTEC PHARMA LIMITED
  Company Number: None

PATIENT
  Age: 24 Year
  Sex: Male

DRUGS (6)
  1. TACROLIMUS [Suspect]
     Active Substance: TACROLIMUS
     Indication: Immunosuppression
     Route: 065
  2. MYCOPHENOLATE MOFETIL [Suspect]
     Active Substance: MYCOPHENOLATE MOFETIL
     Indication: Immunosuppression
     Route: 065
  3. ALUMINUM SILICATE\CALCIUM CARBONATE\DIASTASE\HERBALS\SODIUM BICARBONAT [Suspect]
     Active Substance: ALUMINUM SILICATE\CALCIUM CARBONATE\DIASTASE\HERBALS\SODIUM BICARBONATE
     Indication: Immunosuppressant drug therapy
     Route: 065
  4. TACROLIMUS [Suspect]
     Active Substance: TACROLIMUS
     Indication: Small intestine transplant
     Route: 065
  5. MYCOPHENOLATE MOFETIL [Suspect]
     Active Substance: MYCOPHENOLATE MOFETIL
     Indication: Small intestine transplant
     Route: 065
  6. ALUMINUM SILICATE\CALCIUM CARBONATE\DIASTASE\HERBALS\SODIUM BICARBONAT [Suspect]
     Active Substance: ALUMINUM SILICATE\CALCIUM CARBONATE\DIASTASE\HERBALS\SODIUM BICARBONATE
     Indication: Small intestine transplant
     Route: 065

REACTIONS (2)
  - Post transplant lymphoproliferative disorder [Recovered/Resolved]
  - Lymphoproliferative disorder [Recovered/Resolved]
